FAERS Safety Report 12924490 (Version 1)
Quarter: 2016Q4

REPORT INFORMATION
  Report Type: Spontaneous
  Country: BE (occurrence: BE)
  Receive Date: 20161108
  Receipt Date: 20161108
  Transmission Date: 20170207
  Serious: Yes (Life-Threatening, Hospitalization)
  Sender: FDA-Public Use
  Company Number: BE-SA-2016SA199724

PATIENT
  Age: 20 Year
  Sex: Male

DRUGS (6)
  1. COLOMYCIN [Concomitant]
     Active Substance: COLISTIN
     Dosage: INHALED
  2. MONTELUKAST [Concomitant]
     Active Substance: MONTELUKAST SODIUM
  3. AZITHROMYCIN ANHYDROUS. [Concomitant]
     Active Substance: AZITHROMYCIN ANHYDROUS
  4. FLUTICASONE [Concomitant]
     Active Substance: FLUTICASONE\FLUTICASONE PROPIONATE
  5. RIFAMPICIN [Suspect]
     Active Substance: RIFAMPIN
     Indication: STAPHYLOCOCCAL INFECTION
     Route: 065
  6. MOXIFLOXACIN. [Concomitant]
     Active Substance: MOXIFLOXACIN
     Indication: STAPHYLOCOCCAL SEPSIS

REACTIONS (25)
  - Headache [Recovered/Resolved]
  - White blood cell count increased [Recovered/Resolved]
  - Fatigue [Recovered/Resolved]
  - Myalgia [Recovered/Resolved]
  - Lymphadenopathy [Recovered/Resolved]
  - Hypoxia [Recovered/Resolved]
  - Incorrect drug administration duration [Unknown]
  - Rash pruritic [Recovered/Resolved]
  - Lymphocyte count increased [Recovered/Resolved]
  - Coagulopathy [Recovered/Resolved]
  - Pericarditis [Recovered/Resolved]
  - Hyperlactacidaemia [Recovered/Resolved]
  - Dysphonia [Recovered/Resolved]
  - Neutrophil count increased [Recovered/Resolved]
  - C-reactive protein increased [Recovered/Resolved]
  - Eosinophilia [Recovered/Resolved]
  - Pleural effusion [Recovered/Resolved]
  - Purpura [Recovered/Resolved]
  - Eosinophil count increased [Recovered/Resolved]
  - Renal impairment [Recovered/Resolved]
  - Hypergammaglobulinaemia [Recovered/Resolved]
  - Malaise [Recovered/Resolved]
  - Drug reaction with eosinophilia and systemic symptoms [Recovered/Resolved]
  - Pyrexia [Recovered/Resolved]
  - Hilar lymphadenopathy [Recovered/Resolved]
